FAERS Safety Report 8892361 (Version 10)
Quarter: 2016Q1

REPORT INFORMATION
  Report Type: Spontaneous
  Country: US (occurrence: US)
  Receive Date: 20121107
  Receipt Date: 20160304
  Transmission Date: 20160526
  Serious: Yes (Hospitalization, Other)
  Sender: FDA-Public Use
  Company Number: US-GLAXOSMITHKLINE-A0998922A

PATIENT
  Age: 81 Year
  Sex: Female

DRUGS (4)
  1. SORIATANE [Suspect]
     Active Substance: ACITRETIN
     Dosage: UNK
     Dates: start: 1986
  2. SORIATANE [Suspect]
     Active Substance: ACITRETIN
     Indication: PSORIASIS
     Dosage: 25 MG, UNK
     Dates: start: 1995
  3. SORIATANE [Suspect]
     Active Substance: ACITRETIN
     Indication: PSORIASIS
     Dosage: 10MG, UNKNOWN START DATE;25 MG AS OF 01 JANUARY 1989
     Route: 048
  4. SORIATANE [Suspect]
     Active Substance: ACITRETIN
     Indication: SKIN DISORDER
     Dosage: 25 MG, QD
     Route: 048
     Dates: start: 1985

REACTIONS (11)
  - Cystitis [Unknown]
  - Epistaxis [Unknown]
  - Diarrhoea [Unknown]
  - Malaise [Unknown]
  - Inability to afford medication [Unknown]
  - Blood disorder [Unknown]
  - Wrong patient received medication [Not Recovered/Not Resolved]
  - Skin reaction [Unknown]
  - Abasia [Unknown]
  - Injury [Unknown]
  - Fall [Unknown]

NARRATIVE: CASE EVENT DATE: 201404
